FAERS Safety Report 24133892 (Version 1)
Quarter: 2024Q3

REPORT INFORMATION
  Report Type: Spontaneous
  Country: US (occurrence: US)
  Receive Date: 20240724
  Receipt Date: 20240724
  Transmission Date: 20241017
  Serious: No
  Sender: PFIZER
  Company Number: US-PFIZER INC-202400219709

PATIENT
  Age: 41 Year
  Sex: Male
  Weight: 73.016 kg

DRUGS (4)
  1. DESVENLAFAXINE SUCCINATE [Suspect]
     Active Substance: DESVENLAFAXINE SUCCINATE
     Indication: Depression
     Dosage: 25 MG, 1X/DAY
     Route: 048
     Dates: start: 20240720
  2. PROPRANOLOL [Concomitant]
     Active Substance: PROPRANOLOL HYDROCHLORIDE
     Indication: Hypertension
  3. PROPRANOLOL [Concomitant]
     Active Substance: PROPRANOLOL HYDROCHLORIDE
     Indication: Migraine
  4. PROPRANOLOL [Concomitant]
     Active Substance: PROPRANOLOL HYDROCHLORIDE
     Indication: Anxiety

REACTIONS (8)
  - Drug ineffective [Unknown]
  - Anxiety [Unknown]
  - Eye pain [Unknown]
  - Somnolence [Unknown]
  - Oedema [Unknown]
  - Peripheral swelling [Unknown]
  - Burning sensation [Unknown]
  - Joint injury [Unknown]

NARRATIVE: CASE EVENT DATE: 20240720
